FAERS Safety Report 7249693-4 (Version None)
Quarter: 2011Q1

REPORT INFORMATION
  Report Type: 
  Country: None (occurrence: None)
  Receive Date: 20110128
  Receipt Date: 20110121
  Transmission Date: 20110831
  Serious: Yes (Hospitalization)
  Sender: FDA-Public Use
  Company Number: FR-PFIZER INC-FR-WYE-G06577310

PATIENT
  Age: 56 Year
  Sex: Male

DRUGS (7)
  1. LASIX [Concomitant]
     Dosage: UNK
     Route: 048
     Dates: start: 20100501
  2. ZYLORIC ^FAES^ [Suspect]
     Dosage: UNK
     Route: 048
     Dates: start: 20100301, end: 20100101
  3. BISOPROLOL [Concomitant]
     Dosage: UNK
     Route: 048
     Dates: start: 20100601
  4. CORDARONE [Concomitant]
     Dosage: UNK
     Route: 048
     Dates: start: 20100501
  5. RAPAMUNE [Suspect]
     Indication: PROPHYLAXIS AGAINST TRANSPLANT REJECTION
     Dosage: UNK
     Route: 048
     Dates: start: 20100410, end: 20100724
  6. TAHOR [Suspect]
     Dosage: UNK
     Route: 048
     Dates: start: 20100301
  7. RIVOTRIL [Concomitant]
     Dosage: UNK
     Route: 048
     Dates: start: 20100501

REACTIONS (1)
  - DRUG RASH WITH EOSINOPHILIA AND SYSTEMIC SYMPTOMS [None]
